FAERS Safety Report 23581833 (Version 2)
Quarter: 2024Q1

REPORT INFORMATION
  Report Type: Report from Study
  Country: US (occurrence: US)
  Receive Date: 20240229
  Receipt Date: 20240327
  Transmission Date: 20240409
  Serious: Yes (Life-Threatening)
  Sender: FDA-Public Use
  Company Number: US-ALKERMES INC.-ALK-2024-000453

PATIENT
  Age: 54 Year
  Sex: Male

DRUGS (8)
  1. BUPRENORPHINE [Suspect]
     Active Substance: BUPRENORPHINE
     Indication: Drug use disorder
     Dosage: UNK MILLIGRAM, DAY 4-6, WEEK 4
     Route: 058
     Dates: start: 20240215, end: 20240215
  2. INVESTIGATIONAL PRODUCT [Suspect]
     Active Substance: INVESTIGATIONAL PRODUCT
     Indication: Drug use disorder
     Dosage: UNK MILLIGRAM, DAY 4-6, WEEK 4
     Route: 058
     Dates: start: 20240215, end: 20240215
  3. VIVITROL [Suspect]
     Active Substance: NALTREXONE
     Indication: Drug use disorder
     Dosage: UNK MILLIGRAM, DAY 4-6, WEEK 4
     Route: 058
     Dates: start: 20240215, end: 20240215
  4. VIVITROL [Suspect]
     Active Substance: NALTREXONE
     Indication: Drug use disorder
     Dosage: UNK MILLIGRAM, DAY 4-6, WEEK 4
     Route: 058
     Dates: start: 20240215, end: 20240215
  5. BUPRENORPHINE [Suspect]
     Active Substance: BUPRENORPHINE
     Dosage: UNK MILLIGRAM, DAY 1, WEEKS 3-6
     Route: 030
     Dates: start: 20240209
  6. INVESTIGATIONAL PRODUCT [Suspect]
     Active Substance: INVESTIGATIONAL PRODUCT
     Dosage: UNK MILLIGRAM, DAY 1, WEEKS 3-6
     Route: 030
     Dates: start: 20240209
  7. VIVITROL [Suspect]
     Active Substance: NALTREXONE
     Dosage: UNK MILLIGRAM, DAY 1, WEEKS 3-6
     Route: 030
     Dates: start: 20240209
  8. VIVITROL [Suspect]
     Active Substance: NALTREXONE
     Dosage: UNK MILLIGRAM, DAY 1, WEEKS 3-6
     Route: 030
     Dates: start: 20240209

REACTIONS (1)
  - Strangulated hernia [Recovering/Resolving]

NARRATIVE: CASE EVENT DATE: 20240216
